FAERS Safety Report 12221144 (Version 2)
Quarter: 2016Q2

REPORT INFORMATION
  Report Type: Spontaneous
  Country: US (occurrence: US)
  Receive Date: 20160330
  Receipt Date: 20160518
  Transmission Date: 20160815
  Serious: No
  Sender: FDA-Public Use
  Company Number: US-BIODELIVERY SCIENCES INTERNATIONAL, INC.-US-2015BDS000050

PATIENT

DRUGS (3)
  1. BUNAVAIL [Suspect]
     Active Substance: BUPRENORPHINE HYDROCHLORIDE\NALOXONE HYDROCHLORIDE DIHYDRATE
     Indication: PRODUCT USED FOR UNKNOWN INDICATION
     Dosage: 6.3/1MG, QD
     Route: 002
     Dates: start: 20150413
  2. BUNAVAIL [Suspect]
     Active Substance: BUPRENORPHINE HYDROCHLORIDE\NALOXONE HYDROCHLORIDE DIHYDRATE
     Dosage: 12.6/2MG, QD
  3. BUNAVAIL [Suspect]
     Active Substance: BUPRENORPHINE HYDROCHLORIDE\NALOXONE HYDROCHLORIDE DIHYDRATE
     Dosage: 6.3/1MG
     Route: 002
     Dates: start: 201412, end: 201412

REACTIONS (4)
  - Product quality issue [Unknown]
  - Therapeutic response decreased [Unknown]
  - Therapy change [Unknown]
  - Product solubility abnormal [Unknown]

NARRATIVE: CASE EVENT DATE: 20150413
